FAERS Safety Report 18967770 (Version 1)
Quarter: 2021Q1

REPORT INFORMATION
  Report Type: Spontaneous
  Country: US (occurrence: US)
  Receive Date: 20210304
  Receipt Date: 20210304
  Transmission Date: 20210420
  Serious: No
  Sender: FDA-Public Use
  Company Number: US-TEVA-2021-US-1878484

PATIENT
  Age: 50 Year
  Sex: Female

DRUGS (11)
  1. LORAZEPAM 0.5 MG [Concomitant]
     Active Substance: LORAZEPAM
     Route: 048
  2. CITALOPRAM HYDROBROMIDE 40 MG [Concomitant]
     Active Substance: CITALOPRAM HYDROBROMIDE
     Route: 048
  3. CALCIUM 600 MG [Concomitant]
     Route: 048
  4. OSTEO BI?FLEX JOINT SHIELD [Concomitant]
     Route: 048
  5. PRISTIQ TABLET EXTENDED RELEASE 24 HOUR 25 MG [Concomitant]
     Route: 048
  6. AUSTEDO [Suspect]
     Active Substance: DEUTETRABENAZINE
     Route: 048
  7. AUSTEDO [Suspect]
     Active Substance: DEUTETRABENAZINE
     Dosage: 18 MILLIGRAM DAILY; CURRENT DOSE
     Route: 048
     Dates: start: 20210131
  8. LAMOTRIGINE 200 MG [Concomitant]
     Active Substance: LAMOTRIGINE
     Route: 048
  9. LEVOTHYROXINE SODIUM 50 MCG [Concomitant]
     Active Substance: LEVOTHYROXINE SODIUM
     Route: 048
  10. IBU?200 200 MG [Concomitant]
     Route: 048
  11. AUSTEDO [Suspect]
     Active Substance: DEUTETRABENAZINE
     Indication: TARDIVE DYSKINESIA
     Route: 048

REACTIONS (3)
  - Dyskinesia [Unknown]
  - Weight increased [Unknown]
  - Aggression [Unknown]
